FAERS Safety Report 8223526-1 (Version None)
Quarter: 2012Q1

REPORT INFORMATION
  Report Type: 
  Country: None (occurrence: None)
  Receive Date: 20120316
  Receipt Date: 20120306
  Transmission Date: 20120608
  Serious: Yes (Other)
  Sender: FDA-Public Use
  Company Number: 2012-1145

PATIENT
  Age: 52 Year
  Sex: Female

DRUGS (3)
  1. DYSPORT [Suspect]
     Indication: SKIN WRINKLING
     Dosage: 60 UNITS (60 UNITS, SINGLE CYCLE) SUBCUTANEOUS
     Route: 058
     Dates: start: 20120130, end: 20120130
  2. DYSPORT [Suspect]
     Indication: OFF LABEL USE
     Dosage: 60 UNITS (60 UNITS, SINGLE CYCLE) SUBCUTANEOUS
     Route: 058
     Dates: start: 20120130, end: 20120130
  3. UNSPECIFIED STEROIDS (CORTICOSTEROID NOS) [Concomitant]

REACTIONS (2)
  - HYPERSENSITIVITY [None]
  - ASTHMA [None]
